FAERS Safety Report 6588645-4 (Version None)
Quarter: 2010Q1

REPORT INFORMATION
  Report Type: 
  Country: None (occurrence: None)
  Receive Date: 20100218
  Receipt Date: 20100209
  Transmission Date: 20100710
  Serious: Yes (Other)
  Sender: FDA-Public Use
  Company Number: US-SANOFI-AVENTIS-2010SA008455

PATIENT
  Age: 53 Year
  Sex: Female

DRUGS (6)
  1. SOLOSTAR [Suspect]
     Dates: start: 20091001
  2. SOLOSTAR [Suspect]
     Indication: TYPE 2 DIABETES MELLITUS
  3. APIDRA [Suspect]
     Dosage: SLIDING SCALE WITH MEALS
     Route: 058
     Dates: start: 20091001
  4. APIDRA [Suspect]
     Dosage: DOSE:22 UNIT(S)
     Route: 058
     Dates: start: 20091001
  5. LANTUS [Suspect]
     Indication: TYPE 2 DIABETES MELLITUS
     Dosage: DOSE:28 UNIT(S)
     Route: 058
  6. LANTUS [Suspect]
     Dosage: DOSE:6 UNIT(S)
     Route: 058

REACTIONS (2)
  - HYPOGLYCAEMIA [None]
  - WRONG DRUG ADMINISTERED [None]
